FAERS Safety Report 8079131-3 (Version None)
Quarter: 2012Q1

REPORT INFORMATION
  Report Type: 
  Country: None (occurrence: None)
  Receive Date: 20120128
  Receipt Date: 20110818
  Transmission Date: 20120608
  Serious: No
  Sender: FDA-Public Use
  Company Number: US-ABBOTT-11P-163-0847822-00

PATIENT
  Age: 20 Year
  Sex: Female

DRUGS (3)
  1. LISINOPRIL [Concomitant]
     Indication: HYPERTENSION
     Dosage: DAILY
     Dates: start: 20080710
  2. HYDROCHLOROTHIAZIDE [Concomitant]
     Indication: HYPERTENSION
     Dosage: DAILY
     Dates: start: 20080710
  3. HUMIRA [Suspect]
     Indication: PSORIASIS
     Dates: start: 20110601

REACTIONS (4)
  - LOCALISED INFECTION [None]
  - URINARY TRACT INFECTION [None]
  - OEDEMA PERIPHERAL [None]
  - RASH PAPULAR [None]
